FAERS Safety Report 23930850 (Version 2)
Quarter: 2024Q2

REPORT INFORMATION
  Report Type: Spontaneous
  Country: NL (occurrence: NL)
  Receive Date: 20240603
  Receipt Date: 20240603
  Transmission Date: 20240716
  Serious: Yes (Other)
  Sender: FDA-Public Use
  Company Number: None

PATIENT
  Age: 70 Year
  Sex: Female
  Weight: 80 kg

DRUGS (2)
  1. KENACORT [Suspect]
     Active Substance: TRIAMCINOLONE
     Indication: Bursitis
     Dates: start: 20240425
  2. LIDOCAINE [Suspect]
     Active Substance: LIDOCAINE
     Indication: Bursitis
     Dates: start: 20240425

REACTIONS (2)
  - Inflammation [Recovering/Resolving]
  - Wound necrosis [Recovering/Resolving]
